FAERS Safety Report 6590764-3 (Version None)
Quarter: 2010Q1

REPORT INFORMATION
  Report Type: 
  Country: None (occurrence: None)
  Receive Date: 20100205
  Receipt Date: 20100125
  Transmission Date: 20100710
  Serious: Yes (Hospitalization, Other)
  Sender: FDA-Public Use
  Company Number: A-US2007-13996

PATIENT
  Age: 88 Year
  Sex: Female
  Weight: 61.2 kg

DRUGS (20)
  1. TRACLEER [Suspect]
     Indication: PULMONARY ARTERIAL HYPERTENSION
     Dosage: ORAL
     Route: 048
     Dates: start: 20061212, end: 20070110
  2. ANTIBIOTICS [Concomitant]
  3. COUMADIN [Concomitant]
  4. PROTONIX [Concomitant]
  5. AVAPRO [Concomitant]
  6. PULMICORT [Concomitant]
  7. LABETALOL HCL [Concomitant]
  8. POTASSIUM CHLORIDE [Concomitant]
  9. CARDURA [Concomitant]
  10. ATROVENT [Concomitant]
  11. FLONASE [Concomitant]
  12. LASIX [Concomitant]
  13. ISOSORBIDE (ISOSORBIDE DINITRATE) [Concomitant]
  14. LORAZEPAM [Concomitant]
  15. IRON (IRON) [Concomitant]
  16. ULTRAM [Concomitant]
  17. LEVAQUIN [Concomitant]
  18. OXYGEN (OXYGEN) [Concomitant]
  19. ATROVENT [Concomitant]
  20. IMDUR [Concomitant]

REACTIONS (13)
  - ALANINE AMINOTRANSFERASE INCREASED [None]
  - ANAEMIA MACROCYTIC [None]
  - ASPARTATE AMINOTRANSFERASE INCREASED [None]
  - ATRIAL FIBRILLATION [None]
  - BLOOD ALKALINE PHOSPHATASE INCREASED [None]
  - BLOOD BILIRUBIN INCREASED [None]
  - CARDIAC FAILURE [None]
  - CARDIOVASCULAR DECONDITIONING [None]
  - MOTOR DYSFUNCTION [None]
  - MUSCULAR WEAKNESS [None]
  - PAIN IN EXTREMITY [None]
  - PLEURAL EFFUSION [None]
  - PNEUMONIA [None]
